FAERS Safety Report 10733970 (Version 1)
Quarter: 2015Q1

REPORT INFORMATION
  Report Type: Spontaneous
  Country: US (occurrence: US)
  Receive Date: 20150123
  Receipt Date: 20150123
  Transmission Date: 20150721
  Serious: No
  Sender: FDA-Public Use
  Company Number: US-GLAXOSMITHKLINE-US2014GSK047825

PATIENT
  Age: 71 Year
  Sex: Female

DRUGS (5)
  1. ARIMIDEX [Concomitant]
     Active Substance: ANASTROZOLE
  2. ZESTRIL [Concomitant]
     Active Substance: LISINOPRIL
  3. VENTOLIN [Suspect]
     Active Substance: ALBUTEROL SULFATE
     Indication: ASTHMA
     Dosage: 2 PUFF(S), QD
     Route: 055
     Dates: start: 201409
  4. WELCHOL [Concomitant]
     Active Substance: COLESEVELAM HYDROCHLORIDE
  5. PANCRELIPASE. [Concomitant]
     Active Substance: PANCRELIPASE

REACTIONS (1)
  - Dizziness [Not Recovered/Not Resolved]

NARRATIVE: CASE EVENT DATE: 201409
